FAERS Safety Report 8383927-8 (Version None)
Quarter: 2012Q2

REPORT INFORMATION
  Report Type: 
  Country: None (occurrence: None)
  Receive Date: 20120524
  Receipt Date: 20120511
  Transmission Date: 20120825
  Serious: Yes (Death, Hospitalization, Other)
  Sender: FDA-Public Use
  Company Number: US-WATSON-2012-08318

PATIENT
  Age: 24 Year
  Sex: Female

DRUGS (2)
  1. BUPROPION HCL [Suspect]
     Indication: COMPLETED SUICIDE
     Dosage: UNK
     Route: 065
  2. CITALOPRAM HYDROBROMIDE [Suspect]
     Indication: COMPLETED SUICIDE
     Dosage: UNK
     Route: 065

REACTIONS (6)
  - VENTRICULAR TACHYCARDIA [None]
  - OVERDOSE [None]
  - HYPOTENSION [None]
  - CARDIAC ARREST [None]
  - GRAND MAL CONVULSION [None]
  - ELECTROCARDIOGRAM QRS COMPLEX PROLONGED [None]
